FAERS Safety Report 8759297 (Version 2)
Quarter: 2012Q4

REPORT INFORMATION
  Report Type: 
  Country: IL (occurrence: IL)
  Receive Date: 20120829
  Receipt Date: 20120920
  Transmission Date: 20130627
  Serious: Yes (Other)
  Sender: FDA-Public Use
  Company Number: IL-B.I. PHARMACEUTICALS,INC./RIDGEFIELD-2012-AP-00692RI

PATIENT
  Age: 77 Year
  Sex: Female

DRUGS (10)
  1. PRADAXA [Suspect]
     Indication: ATRIAL FIBRILLATION
     Dosage: 220 mg
     Route: 048
     Dates: start: 201107
  2. PRADAXA [Suspect]
     Indication: CEREBROVASCULAR ACCIDENT PROPHYLAXIS
  3. CIPRALEX [Concomitant]
     Dosage: 10 mg
  4. EZYTROL [Concomitant]
     Indication: HYPERCHOLESTEROLAEMIA
     Dosage: 1x1/d
  5. STATOR [Concomitant]
     Indication: HYPERCHOLESTEROLAEMIA
     Dosage: 10 mg
  6. OMEPRADEX [Concomitant]
     Dosage: 20 mg
  7. NORMITEN [Concomitant]
     Dosage: 12.5 mg
  8. RYTHMEX [Concomitant]
     Dosage: 450 mg
  9. OCSAR [Concomitant]
     Indication: HYPERTENSION
     Dosage: see narrative
  10. OCSAR PLUS [Concomitant]
     Indication: HYPERTENSION
     Dosage: see narrative

REACTIONS (3)
  - Hypotension [Recovered/Resolved]
  - Conjunctival haemorrhage [Recovered/Resolved]
  - Fatigue [Not Recovered/Not Resolved]
